FAERS Safety Report 4557149-2 (Version None)
Quarter: 2005Q1

REPORT INFORMATION
  Report Type: 
  Country: None (occurrence: None)
  Receive Date: 20050118
  Receipt Date: 20050110
  Transmission Date: 20050727
  Serious: Yes (Other)
  Sender: FDA-Public Use
  Company Number: K200500034

PATIENT
  Sex: Female

DRUGS (1)
  1. NORDETTE-21 [Suspect]
     Dosage: ORAL
     Route: 048
     Dates: start: 20040401

REACTIONS (1)
  - SYSTEMIC LUPUS ERYTHEMATOSUS [None]
